FAERS Safety Report 13840561 (Version 1)
Quarter: 2017Q3

REPORT INFORMATION
  Report Type: Spontaneous
  Country: CZ (occurrence: CZ)
  Receive Date: 20170807
  Receipt Date: 20170807
  Transmission Date: 20171127
  Serious: Yes (Life-Threatening, Hospitalization, Other)
  Sender: FDA-Public Use
  Company Number: CZ-TEVA-793171ISR

PATIENT
  Age: 43 Year
  Sex: Female

DRUGS (4)
  1. AMBROXOL [Suspect]
     Active Substance: AMBROXOL
     Indication: SUICIDE ATTEMPT
     Dosage: 600MG ON TOTAL
     Dates: start: 20140928, end: 20140928
  2. MIRTAZAPINUM [Suspect]
     Active Substance: MIRTAZAPINE
     Indication: SUICIDE ATTEMPT
     Dosage: 300 MG TOTAL
     Dates: start: 20140928, end: 20140928
  3. STOPEX [Suspect]
     Active Substance: DEXTROMETHORPHAN HYDROBROMIDE
     Indication: SUICIDE ATTEMPT
     Dosage: 690MG IN TOTAL
     Dates: start: 20140928, end: 20140928
  4. PARALEN [Suspect]
     Active Substance: ACETAMINOPHEN
     Indication: SUICIDE ATTEMPT
     Dosage: 5G IN TOLTAL
     Dates: start: 20140928, end: 20140928

REACTIONS (6)
  - Intentional product misuse [Unknown]
  - Fatigue [Unknown]
  - Suicide attempt [Unknown]
  - Overdose [Unknown]
  - Vomiting [Unknown]
  - Toxicity to various agents [None]

NARRATIVE: CASE EVENT DATE: 20140928
